FAERS Safety Report 22346185 (Version 1)
Quarter: 2023Q2

REPORT INFORMATION
  Report Type: Spontaneous
  Country: US (occurrence: US)
  Receive Date: 20230519
  Receipt Date: 20230519
  Transmission Date: 20230721
  Serious: No
  Sender: FDA-Public Use
  Company Number: US-ABBVIE-4772824

PATIENT
  Sex: Female

DRUGS (1)
  1. SKYRIZI [Suspect]
     Active Substance: RISANKIZUMAB-RZAA
     Indication: Psoriasis
     Dosage: WEEK 4
     Route: 058
     Dates: start: 20230415

REACTIONS (4)
  - Muscular weakness [Unknown]
  - Product leakage [Not Recovered/Not Resolved]
  - Gait inability [Unknown]
  - Wrong technique in product usage process [Not Recovered/Not Resolved]
